FAERS Safety Report 5739986-1 (Version None)
Quarter: 2008Q2

REPORT INFORMATION
  Report Type: 
  Country: None (occurrence: None)
  Receive Date: 20080516
  Receipt Date: 20080506
  Transmission Date: 20081010
  Serious: Yes (Hospitalization, Other)
  Sender: FDA-Public Use
  Company Number: US-AMGEN-US275508

PATIENT
  Sex: Female

DRUGS (6)
  1. EPOGEN [Suspect]
     Indication: DIALYSIS
     Dates: start: 20050101
  2. SENSIPAR [Concomitant]
     Indication: HYPERPARATHYROIDISM SECONDARY
     Route: 065
  3. FOLIC ACID [Concomitant]
     Route: 065
     Dates: start: 20070501
  4. PREDNISONE TAB [Concomitant]
     Route: 065
     Dates: start: 20070501
  5. CARAFATE [Concomitant]
  6. FOLIC ACID [Concomitant]

REACTIONS (5)
  - CUSHINGOID [None]
  - DYSPNOEA [None]
  - HYPOCHROMIC ANAEMIA [None]
  - IDIOPATHIC THROMBOCYTOPENIC PURPURA [None]
  - THERAPEUTIC RESPONSE DECREASED [None]
